FAERS Safety Report 10791414 (Version 1)
Quarter: 2015Q1

REPORT INFORMATION
  Report Type: Spontaneous
  Country: US (occurrence: US)
  Receive Date: 20150213
  Receipt Date: 20150213
  Transmission Date: 20150721
  Serious: No
  Sender: FDA-Public Use
  Company Number: US-GLAXOSMITHKLINE-A1084162A

PATIENT

DRUGS (1)
  1. NICODERM CQ [Suspect]
     Active Substance: NICOTINE
     Indication: EX-TOBACCO USER
     Dates: start: 20140804

REACTIONS (4)
  - Poor quality sleep [Not Recovered/Not Resolved]
  - Insomnia [Unknown]
  - Anxiety [Unknown]
  - Feeling jittery [Unknown]

NARRATIVE: CASE EVENT DATE: 20140806
